FAERS Safety Report 13986119 (Version 1)
Quarter: 2017Q3

REPORT INFORMATION
  Report Type: Spontaneous
  Country: US (occurrence: US)
  Receive Date: 20170919
  Receipt Date: 20170919
  Transmission Date: 20171128
  Serious: No
  Sender: FDA-Public Use
  Company Number: US-ALVOGEN-2017-ALVOGEN-092651

PATIENT
  Age: 62 Year
  Sex: Male

DRUGS (2)
  1. SYNTHROID [Suspect]
     Active Substance: LEVOTHYROXINE SODIUM
  2. ACETAMINOPHEN W/OXYCODONE [Suspect]
     Active Substance: ACETAMINOPHEN\OXYCODONE HYDROCHLORIDE
     Indication: PRODUCT USED FOR UNKNOWN INDICATION
     Dosage: ACETAMINOPHEN W/ OXYCODONE 10/325
     Dates: start: 201706

REACTIONS (2)
  - Drug effect decreased [Unknown]
  - Product substitution issue [Unknown]

NARRATIVE: CASE EVENT DATE: 201706
